FAERS Safety Report 5682314-0 (Version None)
Quarter: 2008Q1

REPORT INFORMATION
  Report Type: 
  Country: None (occurrence: None)
  Receive Date: 20080327
  Receipt Date: 20080319
  Transmission Date: 20080703
  Serious: Yes (Death, Life-Threatening, Hospitalization)
  Sender: FDA-Public Use
  Company Number: CH-RANBAXY-2008US-12880

PATIENT

DRUGS (31)
  1. ISOPTIN SR [Suspect]
     Indication: SUPRAVENTRICULAR TACHYCARDIA
     Dosage: 1 DF, QD
     Route: 065
     Dates: start: 20030314
  2. ISOPTIN SR [Suspect]
     Indication: TACHYCARDIA PAROXYSMAL
     Dosage: 1.5 DF, SINGLE
     Route: 065
     Dates: end: 20030331
  3. CLEMASTINE FUMARATE [Suspect]
     Indication: DERMATITIS
     Dosage: UNK DF, UNK
     Route: 048
     Dates: start: 20030403, end: 20030409
  4. METOCLOPRAMIDE [Suspect]
     Indication: NAUSEA
     Dosage: UNK DF, UNK
     Route: 048
     Dates: start: 20030904
  5. METOCLOPRAMIDE [Suspect]
     Indication: VOMITING
  6. DIAZEPAM [Suspect]
     Indication: GRAND MAL CONVULSION
     Dosage: UNK
     Route: 065
     Dates: start: 20030331, end: 20030409
  7. DIAZEPAM [Suspect]
     Indication: EPILEPSY
  8. CARBAMAZEPINE [Suspect]
     Indication: GRAND MAL CONVULSION
     Dosage: 75 UNK, QD
     Route: 065
     Dates: start: 20030201, end: 20030416
  9. CARBAMAZEPINE [Suspect]
     Indication: EPILEPSY
  10. DIGITOXIN INJ [Suspect]
     Indication: SUPRAVENTRICULAR TACHYCARDIA
     Dosage: UNK
     Route: 065
     Dates: start: 20030304, end: 20030101
  11. CLONAZEPAM [Suspect]
     Indication: GRAND MAL CONVULSION
     Dosage: UNK
     Route: 065
     Dates: start: 20030331, end: 20030409
  12. CLONAZEPAM [Suspect]
     Indication: EPILEPSY
  13. THEOPHYLLINE [Suspect]
     Indication: DRUG USE FOR UNKNOWN INDICATION
     Dosage: 1 DF, SINGLE
     Route: 065
     Dates: start: 20030314, end: 20030101
  14. PULMICORT [Suspect]
     Indication: CHRONIC OBSTRUCTIVE PULMONARY DISEASE
     Dosage: 2 DF, BID
     Route: 055
     Dates: start: 20030327
  15. PULMICORT [Suspect]
     Dosage: 2 DF, QD
     Route: 055
     Dates: end: 20030329
  16. SEREVENT [Suspect]
     Indication: CHRONIC OBSTRUCTIVE PULMONARY DISEASE
     Dosage: 2 DF, QD
     Route: 055
     Dates: start: 20030327, end: 20030329
  17. EUNEPRAN [Suspect]
     Indication: SLEEP DISORDER
     Dosage: 1 DF, QD
     Route: 065
     Dates: start: 20030327, end: 20030330
  18. MAROMAR [Suspect]
     Indication: THROMBOSIS PROPHYLAXIS
     Dosage: UNK DF, QD
     Route: 065
     Dates: start: 20030314, end: 20030406
  19. DECORTIN-H [Suspect]
     Indication: DERMATITIS
     Dosage: UNK DF, QD
     Route: 065
     Dates: start: 20030320, end: 20030411
  20. NOVODIGRAL [Suspect]
     Indication: SUPRAVENTRICULAR TACHYCARDIA
     Dosage: 0.2 MG, QD
     Route: 065
     Dates: start: 20030314, end: 20030416
  21. NOVODIGRAL [Suspect]
     Indication: TACHYCARDIA PAROXYSMAL
  22. PLAVIX [Suspect]
     Indication: THROMBOSIS PROPHYLAXIS
     Dosage: 1 DF, QD
     Route: 065
     Dates: start: 20030228, end: 20030101
  23. DYTIDE [Suspect]
     Indication: HYPERTENSION
     Dosage: 1 DF, BID
     Route: 065
     Dates: start: 20030314, end: 20030101
  24. FEXOFENADINE HCL [Suspect]
     Indication: DERMATITIS
     Dosage: 1 DF, QD
     Route: 065
     Dates: start: 20030409, end: 20030410
  25. INNOHEP [Suspect]
     Indication: THROMBOSIS PROPHYLAXIS
     Dosage: 0.4 ML, UNK
     Route: 058
     Dates: start: 20030409, end: 20030416
  26. REPELTIN [Suspect]
     Indication: PRURITUS
     Dosage: 1 DF, QD
     Route: 065
     Dates: start: 20030410, end: 20030416
  27. CORNEREGAL [Suspect]
     Indication: CONJUNCTIVITIS
     Dosage: 3 DF, QD
     Route: 065
     Dates: start: 20030412, end: 20030416
  28. BERODUAL N [Suspect]
     Indication: CHRONIC OBSTRUCTIVE PULMONARY DISEASE
     Dosage: 2 DF, QD
     Route: 065
     Dates: start: 20030412, end: 20030416
  29. ERGENYL [Suspect]
     Indication: EPILEPSY
     Dosage: 2 DF, QD
     Route: 065
  30. FRISIUM [Suspect]
     Indication: EPILEPSY
     Dosage: 1 DF, QD
     Route: 065
     Dates: start: 20030416, end: 20030101
  31. PANTOPRAZOLE SODIUM [Suspect]
     Indication: GASTRIC DISORDER
     Dosage: 20MG
     Route: 048
     Dates: start: 20030314, end: 20030101

REACTIONS (11)
  - BLISTER [None]
  - ERYTHEMA [None]
  - GENITAL EROSION [None]
  - NIKOLSKY'S SIGN [None]
  - OPEN WOUND [None]
  - PAIN OF SKIN [None]
  - PRURITUS [None]
  - SKIN LESION [None]
  - SKIN REACTION [None]
  - STEVENS-JOHNSON SYNDROME [None]
  - TOXIC EPIDERMAL NECROLYSIS [None]
